FAERS Safety Report 6348826-1 (Version None)
Quarter: 2009Q3

REPORT INFORMATION
  Report Type: 
  Country: None (occurrence: None)
  Receive Date: 20090911
  Receipt Date: 20090907
  Transmission Date: 20100115
  Serious: Yes (Death)
  Sender: FDA-Public Use
  Company Number: JP-ASTRAZENECA-2009SE09038

PATIENT
  Age: 34 Year
  Sex: Female
  Weight: 50 kg

DRUGS (2)
  1. IRESSA [Suspect]
     Indication: LUNG ADENOCARCINOMA
     Route: 048
     Dates: start: 20071227, end: 20080101
  2. GEMZAR [Suspect]
     Indication: LUNG ADENOCARCINOMA
     Dosage: 1400 MG/BODY
     Route: 041
     Dates: start: 20080101, end: 20080105

REACTIONS (2)
  - DISSEMINATED INTRAVASCULAR COAGULATION [None]
  - LUNG DISORDER [None]
